FAERS Safety Report 7991693-0 (Version None)
Quarter: 2011Q4

REPORT INFORMATION
  Report Type: 
  Country: None (occurrence: None)
  Receive Date: 20111219
  Receipt Date: 20111208
  Transmission Date: 20120403
  Serious: Yes (Other)
  Sender: FDA-Public Use
  Company Number: PHHY2011DK02303

PATIENT
  Sex: Male

DRUGS (5)
  1. PAMOL [Concomitant]
     Indication: PAIN
     Dosage: 1 G, TID
     Route: 065
  2. ZOMETA [Suspect]
     Indication: OSTEOPOROSIS
     Dosage: 4 MG, UNK
     Route: 042
     Dates: start: 20080122, end: 20100329
  3. OXYCODONE HCL [Concomitant]
     Indication: PAIN
     Dosage: 5 MG, PRN
     Route: 065
  4. SUTENT [Suspect]
     Indication: METASTATIC RENAL CELL CARCINOMA
     Dosage: 50 MG, QD
     Route: 048
     Dates: start: 20090120
  5. OXYCONTIN [Concomitant]
     Indication: PAIN
     Dosage: 10 MG, BID
     Route: 065

REACTIONS (5)
  - PAIN [None]
  - IMPAIRED HEALING [None]
  - OSTEONECROSIS OF JAW [None]
  - PERIODONTITIS [None]
  - EXPOSED BONE IN JAW [None]
